FAERS Safety Report 17190321 (Version 1)
Quarter: 2019Q4

REPORT INFORMATION
  Report Type: Spontaneous
  Country: US (occurrence: US)
  Receive Date: 20191129
  Receipt Date: 20191129
  Transmission Date: 20200122
  Serious: No
  Sender: FDA-Public Use
  Company Number: None

PATIENT
  Age: 38 Year
  Sex: Female

DRUGS (1)
  1. OPSUMIT [Suspect]
     Active Substance: MACITENTAN
     Indication: PULMONARY HYPERTENSION
     Route: 048
     Dates: start: 20190607, end: 20191129

REACTIONS (3)
  - Respiratory failure [None]
  - Pneumonitis [None]
  - Metapneumovirus infection [None]

NARRATIVE: CASE EVENT DATE: 20191107
